FAERS Safety Report 8164826-3 (Version None)
Quarter: 2012Q1

REPORT INFORMATION
  Report Type: 
  Country: None (occurrence: None)
  Receive Date: 20120227
  Receipt Date: 20120215
  Transmission Date: 20120608
  Serious: No
  Sender: FDA-Public Use
  Company Number: US-BIOGENIDEC-2012BI006091

PATIENT
  Age: 28 Year
  Sex: Female

DRUGS (2)
  1. TYSABRI [Suspect]
     Indication: MULTIPLE SCLEROSIS
     Route: 042
     Dates: start: 20070607, end: 20091209
  2. TYSABRI [Suspect]
     Route: 042
     Dates: start: 20101124

REACTIONS (2)
  - MULTIPLE SCLEROSIS RELAPSE [None]
  - HEADACHE [None]
